FAERS Safety Report 6311104 (Version 2)
Quarter: 2020Q3

REPORT INFORMATION
  Report Type: Report from Study
  Country: AT (occurrence: AT)
  Receive Date: 20070514
  Receipt Date: 20080730
  Transmission Date: 20201104
  Serious: Yes (Hospitalization)
  Sender: FDA-Public Use
  Company Number: AT-ROCHE-492866

PATIENT
  Age: 69 Year
  Sex: Female
  Weight: 76.8 kg

DRUGS (8)
  1. RABEPRAZOL [Concomitant]
     Dosage: DURG REPORTED AS  ^RABEPRAZOL NATRIUM^.
     Dates: start: 20050907
  2. DOCETAXEL. [Suspect]
     Active Substance: DOCETAXEL
     Dosage: FORM REPORTED AS ^FLUID^.
     Route: 042
     Dates: start: 20060619
  3. HYDROCHLOROTHIAZIDE\LISINOPRIL [Concomitant]
     Active Substance: HYDROCHLOROTHIAZIDE\LISINOPRIL
     Dates: start: 20051201
  4. BEVACIZUMAB. [Suspect]
     Active Substance: BEVACIZUMAB
     Dosage: FORM REPORTED AS ^FLUID^.
     Route: 042
     Dates: start: 20060619, end: 20070302
  5. .ALPHA.?TOCOPHEROL\ASCORBIC ACID\BIOTIN\CALCIUM\CALCIUM PANTOTHENATE\CHROMIUM\COPPER\CYANOCOBALAMIN [Concomitant]
     Dates: start: 1991
  6. IBANDRONIC ACID. [Suspect]
     Active Substance: IBANDRONIC ACID
     Indication: PRODUCT USED FOR UNKNOWN INDICATION
     Route: 065
     Dates: start: 20050817, end: 20070411
  7. NIMESULID [Concomitant]
     Active Substance: NIMESULIDE
     Dosage: DOSE ? AS NEEDED
     Dates: start: 200605
  8. CHELIDONIUM MAJUS\CONDURANGO\ECHINACEA, UNSPECIFIED\LYCOPODIUM CLAVATUM SPORE [Concomitant]
     Dosage: TOTAL DAILY DOSE REPORTED AS ^NA^.
     Dates: start: 20061024

REACTIONS (1)
  - Osteonecrosis [Recovered/Resolved]

NARRATIVE: CASE EVENT DATE: 20070117
